FAERS Safety Report 6155655-0 (Version None)
Quarter: 2009Q2

REPORT INFORMATION
  Report Type: 
  Country: None (occurrence: None)
  Receive Date: 20090415
  Receipt Date: 20090407
  Transmission Date: 20091009
  Serious: Yes (Death, Other)
  Sender: FDA-Public Use
  Company Number: US-ELI_LILLY_AND_COMPANY-US200904001470

PATIENT
  Sex: Male

DRUGS (1)
  1. SYMBYAX [Suspect]
     Indication: ANXIETY
     Dosage: 1 D/F, UNK

REACTIONS (13)
  - CONTUSION [None]
  - COORDINATION ABNORMAL [None]
  - DRUG INEFFECTIVE [None]
  - FALL [None]
  - FATIGUE [None]
  - HALLUCINATION [None]
  - MYOCARDIAL INFARCTION [None]
  - OEDEMA PERIPHERAL [None]
  - PARANOIA [None]
  - SKIN LACERATION [None]
  - SWELLING FACE [None]
  - TREMOR [None]
  - WEIGHT INCREASED [None]
